FAERS Safety Report 6018964-1 (Version None)
Quarter: 2008Q4

REPORT INFORMATION
  Report Type: 
  Country: None (occurrence: None)
  Receive Date: 20081221
  Receipt Date: 20081221
  Transmission Date: 20090506
  Serious: No
  Sender: FDA-Public Use
  Company Number: None

PATIENT
  Sex: Male
  Weight: 74.7 kg

DRUGS (12)
  1. CYCLOPHOSPHAMIDE [Suspect]
     Dosage: 1463 MG
  2. DOXIL [Suspect]
     Dosage: 78 MG
  3. NEULASTA [Suspect]
     Dosage: 6 MG
  4. PREDNISONE [Suspect]
     Dosage: 400 MG
  5. RITUXIMAB (MOAHC2B8 ANTI CD20, CHIMERIC) [Suspect]
     Dosage: 731 MG
  6. VINCRISTINE SULFATE [Suspect]
     Dosage: 2 MG
  7. LEXAPRO [Concomitant]
  8. LIPITOR [Concomitant]
  9. MULTIVITIMAN [Concomitant]
  10. NADOLOL [Concomitant]
  11. VITAMIN D [Concomitant]
  12. ASPIRIN [Concomitant]

REACTIONS (6)
  - CONSTIPATION [None]
  - DIARRHOEA [None]
  - HAEMOGLOBIN DECREASED [None]
  - NEUTROPHIL COUNT DECREASED [None]
  - PLATELET COUNT DECREASED [None]
  - SYNCOPE [None]
